FAERS Safety Report 16113754 (Version 1)
Quarter: 2019Q1

REPORT INFORMATION
  Report Type: Spontaneous
  Country: US (occurrence: US)
  Receive Date: 20190325
  Receipt Date: 20190325
  Transmission Date: 20190418
  Serious: No
  Sender: FDA-Public Use
  Company Number: US-ALLERGAN-1834300US

PATIENT
  Age: 70 Year
  Sex: Female
  Weight: 59.86 kg

DRUGS (3)
  1. LATISSE [Suspect]
     Active Substance: BIMATOPROST
     Dosage: ACTUAL: 2 GTT,  (3 TIMES A WEEK AT BEDTIME)
     Route: 061
     Dates: start: 20180621
  2. LATISSE [Suspect]
     Active Substance: BIMATOPROST
     Indication: GROWTH OF EYELASHES
     Dosage: ACTUAL: 2 GTT,  (3 TIMES A WEEK AT BEDTIME)
     Route: 061
     Dates: start: 2018, end: 2018
  3. LATISSE [Suspect]
     Active Substance: BIMATOPROST
     Dosage: ACTUAL: 2 GTT,  (3 TIMES A WEEK AT BEDTIME)
     Route: 061
     Dates: start: 201803, end: 2018

REACTIONS (3)
  - Off label use [Unknown]
  - Eyelid exfoliation [Recovered/Resolved]
  - Drug ineffective [Unknown]

NARRATIVE: CASE EVENT DATE: 2018
